FAERS Safety Report 11131149 (Version 1)
Quarter: 2015Q2

REPORT INFORMATION
  Report Type: Spontaneous
  Country: US (occurrence: US)
  Receive Date: 20150522
  Receipt Date: 20150522
  Transmission Date: 20150821
  Serious: Yes (Other)
  Sender: FDA-Public Use
  Company Number: US-BAYER-2015-215037

PATIENT
  Age: 82 Year
  Sex: Female

DRUGS (7)
  1. CEFEPIME [Concomitant]
     Active Substance: CEFEPIME\CEFEPIME HYDROCHLORIDE
     Indication: BACTERIAL TEST NEGATIVE
  2. IMIPENEM AND CILASTATIN [Concomitant]
     Active Substance: CILASTATIN SODIUM\IMIPENEM
     Indication: SEPSIS
     Dosage: UNK
  3. METRONIDAZOLE. [Concomitant]
     Active Substance: METRONIDAZOLE
     Indication: COLITIS
  4. VANCOMYCIN [Concomitant]
     Active Substance: VANCOMYCIN
     Indication: SEPSIS
     Dosage: UNK
  5. IMIPENEM AND CILASTATIN [Concomitant]
     Active Substance: CILASTATIN SODIUM\IMIPENEM
     Indication: SEPSIS
     Dosage: RE-STARTED AFTER CEFEPIME WITHDRAWAL
  6. CIPROFLOXACIN. [Suspect]
     Active Substance: CIPROFLOXACIN
     Indication: COLITIS
     Dosage: UNK
  7. CEFEPIME [Concomitant]
     Active Substance: CEFEPIME\CEFEPIME HYDROCHLORIDE
     Indication: SEPSIS
     Dosage: UNK

REACTIONS (2)
  - Cholestatic liver injury [Recovering/Resolving]
  - Drug-induced liver injury [Recovering/Resolving]
